FAERS Safety Report 20887479 (Version 1)
Quarter: 2022Q2

REPORT INFORMATION
  Report Type: Spontaneous
  Country: CN (occurrence: CN)
  Receive Date: 20220528
  Receipt Date: 20220528
  Transmission Date: 20220721
  Serious: Yes (Other)
  Sender: FDA-Public Use
  Company Number: None

PATIENT
  Age: 58 Year
  Sex: Female
  Weight: 60 kg

DRUGS (4)
  1. CYCLOPHOSPHAMIDE [Suspect]
     Active Substance: CYCLOPHOSPHAMIDE
     Indication: Breast cancer female
     Dosage: 0.95 G, QD, 0.9% SODIUM CHLORIDE 50ML + CYCLOPHOSPHAMIDE 0.95G
     Route: 041
     Dates: start: 20220407, end: 20220407
  2. SODIUM CHLORIDE [Suspect]
     Active Substance: SODIUM CHLORIDE
     Indication: Medication dilution
     Dosage: 50 ML, QD, CYCLOPHOSPHAMIDE (0.95G) + 0.9% SODIUM CHLORIDE (50 ML)
     Route: 041
     Dates: start: 20220407, end: 20220407
  3. SODIUM CHLORIDE [Suspect]
     Active Substance: SODIUM CHLORIDE
     Indication: Medication dilution
     Dosage: 50 ML, QD, 0.9% SODIUM CHLORIDE 50ML + DOCETAXEL 20MG
     Route: 041
     Dates: start: 20220407, end: 20220407
  4. SODIUM CHLORIDE [Suspect]
     Active Substance: SODIUM CHLORIDE
     Dosage: 180 ML, QD, 0.9% SODIUM CHLORIDE 180ML + DOCETAXEL 120MG
     Route: 041
     Dates: start: 20220407, end: 20220407

REACTIONS (3)
  - Nausea [Recovering/Resolving]
  - Decreased appetite [Recovering/Resolving]
  - Constipation [Recovering/Resolving]

NARRATIVE: CASE EVENT DATE: 20220408
